FAERS Safety Report 24161437 (Version 1)
Quarter: 2024Q3

REPORT INFORMATION
  Report Type: Spontaneous
  Country: MT (occurrence: MT)
  Receive Date: 20240801
  Receipt Date: 20240801
  Transmission Date: 20241017
  Serious: Yes (Other)
  Sender: CHEPLAPHARM
  Company Number: None

PATIENT
  Age: 3 Decade
  Sex: Female

DRUGS (5)
  1. CAPECITABINE [Suspect]
     Active Substance: CAPECITABINE
     Indication: Breast cancer
     Dosage: 1000 MG/M2, BID?DAILY DOSE: 2000 MILLIGRAM/M?
     Dates: start: 20221108, end: 20230630
  2. CAPECITABINE [Suspect]
     Active Substance: CAPECITABINE
     Indication: HER2 positive breast cancer
     Dosage: 1000 MG/M2, BID?DAILY DOSE: 2000 MILLIGRAM/M?
     Dates: start: 20221108, end: 20230630
  3. TRASTUZUMAB [Suspect]
     Active Substance: TRASTUZUMAB
     Indication: Breast cancer
     Dosage: UNK, Q3WEEKS
     Dates: start: 20221108, end: 20230630
  4. TRASTUZUMAB [Suspect]
     Active Substance: TRASTUZUMAB
     Indication: HER2 positive breast cancer
     Dosage: UNK, Q3WEEKS
     Dates: start: 20221108, end: 20230630
  5. TUKYSA [Suspect]
     Active Substance: TUCATINIB
     Indication: Breast cancer
     Dosage: 300 MG, BID?DAILY DOSE: 600 MILLIGRAM
     Route: 048
     Dates: start: 20221108, end: 20230104

REACTIONS (3)
  - Hepatotoxicity [Unknown]
  - Malignant neoplasm progression [Unknown]
  - Hyperbilirubinaemia [Not Recovered/Not Resolved]

NARRATIVE: CASE EVENT DATE: 20221201
